FAERS Safety Report 24918411 (Version 1)
Quarter: 2025Q1

REPORT INFORMATION
  Report Type: Spontaneous
  Country: CA (occurrence: CA)
  Receive Date: 20250203
  Receipt Date: 20250203
  Transmission Date: 20250408
  Serious: Yes (Hospitalization, Other)
  Sender: COVIS PHARMA GMBH
  Company Number: CA-AstraZeneca-2020SF40687

PATIENT
  Age: 70 Year
  Sex: Male
  Weight: 94 kg

DRUGS (7)
  1. CICLESONIDE [Suspect]
     Active Substance: CICLESONIDE
     Dosage: 400 MICROGRAM, BID
     Route: 065
     Dates: start: 20180101
  2. ZENHALE [Suspect]
     Active Substance: FORMOTEROL FUMARATE\MOMETASONE FUROATE
     Dosage: 400 MICROGRAM, BID
     Dates: start: 20160101
  3. SINGULAIR [Suspect]
     Active Substance: MONTELUKAST SODIUM
     Route: 065
  4. NUCALA [Suspect]
     Active Substance: MEPOLIZUMAB
     Indication: Asthma
     Dosage: 100 MILLIGRAM, UNK, FREQUENCY: UNK
     Route: 042
     Dates: start: 20191205
  5. OMALIZUMAB [Suspect]
     Active Substance: OMALIZUMAB
     Dosage: 225 MILLIGRAM, UNK, FREQUENCY: UNK
     Route: 065
  6. ALBUTEROL SULFATE [Suspect]
     Active Substance: ALBUTEROL SULFATE
     Route: 065
  7. SPIRIVA RESPIMAT [Suspect]
     Active Substance: TIOTROPIUM BROMIDE
     Dosage: 5 MICROGRAM, QD
     Dates: start: 20180101

REACTIONS (23)
  - Blood immunoglobulin E increased [Unknown]
  - Dyspnoea exertional [Unknown]
  - Eosinophil count increased [Unknown]
  - Exercise tolerance decreased [Unknown]
  - Fall [Unknown]
  - Fatigue [Unknown]
  - Gastrooesophageal reflux disease [Unknown]
  - Heart rate [Unknown]
  - Loss of personal independence in daily activities [Unknown]
  - Mitral valve disease [Unknown]
  - Nasopharyngitis [Unknown]
  - Pain [Unknown]
  - Pneumonia streptococcal [Unknown]
  - Renal impairment [Unknown]
  - Rib fracture [Unknown]
  - Sinusitis [Unknown]
  - Viral infection [Unknown]
  - Vulval disorder [Unknown]
  - Wheezing [Unknown]
  - Asthma [Unknown]
  - Cough [Unknown]
  - Dyspnoea [Unknown]
  - Obstructive airways disorder [Unknown]
